FAERS Safety Report 19317214 (Version 1)
Quarter: 2021Q2

REPORT INFORMATION
  Report Type: Spontaneous
  Country: US (occurrence: US)
  Receive Date: 20210527
  Receipt Date: 20210527
  Transmission Date: 20210717
  Serious: Yes (Other)
  Sender: FDA-Public Use
  Company Number: US-PFIZER INC-2021558943

PATIENT
  Age: 56 Year
  Sex: Male

DRUGS (2)
  1. MILRINONE [Suspect]
     Active Substance: MILRINONE
     Dosage: 0.375 MCG/KG/MIN
  2. MILRINONE [Suspect]
     Active Substance: MILRINONE
     Indication: CARDIAC FAILURE
     Dosage: 0.5 MCG/KG/MIN

REACTIONS (1)
  - Drug dependence [Unknown]
